FAERS Safety Report 4760699-7 (Version None)
Quarter: 2005Q3

REPORT INFORMATION
  Report Type: 
  Country: None (occurrence: None)
  Receive Date: 20050902
  Receipt Date: 20050824
  Transmission Date: 20060218
  Serious: Yes (Death)
  Sender: FDA-Public Use
  Company Number: AR-JNJFOC-20050805636

PATIENT
  Age: 63 Year
  Sex: Female
  Weight: 55 kg

DRUGS (5)
  1. NATRECOR [Suspect]
     Indication: DRUG USE FOR UNKNOWN INDICATION
     Dosage: 0.01 MCG/KG/MIN
     Route: 042
  2. MILRINONE [Concomitant]
  3. DOPAMINE [Concomitant]
  4. DOBUTAMINE HCL [Concomitant]
  5. LEVOSIMENDAN [Concomitant]

REACTIONS (1)
  - DEATH [None]
